FAERS Safety Report 7772499-4 (Version None)
Quarter: 2011Q3

REPORT INFORMATION
  Report Type: 
  Country: None (occurrence: None)
  Receive Date: 20110922
  Receipt Date: 20101104
  Transmission Date: 20111222
  Serious: No
  Sender: FDA-Public Use
  Company Number: US-ASTRAZENECA-2010SE52475

PATIENT
  Age: 49 Year
  Sex: Female

DRUGS (1)
  1. SEROQUEL [Suspect]
     Indication: BIPOLAR DISORDER
     Route: 048
     Dates: start: 20050101, end: 20101101

REACTIONS (13)
  - CHRONIC OBSTRUCTIVE PULMONARY DISEASE [None]
  - INSOMNIA [None]
  - HYPOTENSION [None]
  - HYPOAESTHESIA [None]
  - ABNORMAL SENSATION IN EYE [None]
  - UNRESPONSIVE TO STIMULI [None]
  - AFFECT LABILITY [None]
  - MIGRAINE [None]
  - PLEURISY [None]
  - MUSCLE SPASMS [None]
  - DRUG DOSE OMISSION [None]
  - CHEST PAIN [None]
  - DYSPNOEA [None]
